FAERS Safety Report 4269772-3 (Version None)
Quarter: 2004Q1

REPORT INFORMATION
  Report Type: 
  Country: None (occurrence: None)
  Receive Date: 20040113
  Receipt Date: 20040106
  Transmission Date: 20041129
  Serious: Yes (Other)
  Sender: FDA-Public Use
  Company Number: WAES 0401GBR00023

PATIENT
  Age: 54 Year
  Sex: Female

DRUGS (4)
  1. ASPIRIN [Concomitant]
     Route: 048
     Dates: start: 20000101
  2. FELODIPINE [Concomitant]
     Route: 048
     Dates: start: 20000101
  3. ZOCOR [Suspect]
     Indication: HYPERCHOLESTEROLAEMIA
     Route: 048
     Dates: start: 20031113, end: 20031214
  4. ZOCOR [Suspect]
     Route: 048

REACTIONS (3)
  - LIP PAIN [None]
  - PHARYNGOLARYNGEAL PAIN [None]
  - SWELLING FACE [None]
